FAERS Safety Report 17349370 (Version 1)
Quarter: 2020Q1

REPORT INFORMATION
  Report Type: Report from Study
  Country: None (occurrence: RO)
  Receive Date: 20200130
  Receipt Date: 20200130
  Transmission Date: 20200409
  Serious: Yes (Hospitalization, Other)
  Sender: FDA-Public Use
  Company Number: RO-ABBVIE-20K-135-3247699-00

PATIENT
  Sex: Female

DRUGS (10)
  1. EGILOK EP [Concomitant]
     Indication: HYPERTENSION
     Route: 048
  2. HUMIRA [Suspect]
     Active Substance: ADALIMUMAB
     Indication: ANKYLOSING SPONDYLITIS
     Route: 058
     Dates: start: 20110215, end: 2014
  3. ATACAND [Concomitant]
     Active Substance: CANDESARTAN CILEXETIL
     Indication: HYPERTENSION
     Route: 048
  4. CYSTONE [Concomitant]
     Indication: NEPHROLITHIASIS
     Route: 048
  5. NO-SPA [Concomitant]
     Active Substance: DROTAVERINE HYDROCHLORIDE
     Indication: BILIARY COLIC
     Dosage: FREQUENCY TEXT-AS NEEDED
     Route: 048
  6. HUMIRA [Suspect]
     Active Substance: ADALIMUMAB
     Route: 058
  7. ALPHA D3 [Concomitant]
     Active Substance: ALFACALCIDOL
     Indication: PRODUCT USED FOR UNKNOWN INDICATION
     Route: 048
  8. SERMION [Concomitant]
     Active Substance: NICERGOLINE
     Indication: PRODUCT USED FOR UNKNOWN INDICATION
     Route: 048
  9. TANAKAN [Concomitant]
     Active Substance: GINKGO
     Indication: OXYGEN THERAPY
     Route: 048
  10. HUMIRA [Suspect]
     Active Substance: ADALIMUMAB
     Route: 058
     Dates: start: 2014

REACTIONS (14)
  - Cataract [Recovered/Resolved]
  - Inappropriate schedule of product administration [Not Recovered/Not Resolved]
  - Dyslipidaemia [Unknown]
  - Spinal osteoarthritis [Unknown]
  - Panic attack [Not Recovered/Not Resolved]
  - Biliary colic [Unknown]
  - Uterine leiomyoma [Unknown]
  - Insomnia [Not Recovered/Not Resolved]
  - Osteoarthritis [Unknown]
  - Vertigo [Unknown]
  - Hepatic steatosis [Unknown]
  - Hypercholesterolaemia [Unknown]
  - Renal cyst [Unknown]
  - Injection site pain [Recovered/Resolved]
